FAERS Safety Report 10362477 (Version 2)
Quarter: 2014Q3

REPORT INFORMATION
  Report Type: Report from Study
  Country: US (occurrence: US)
  Receive Date: 20140805
  Receipt Date: 20140805
  Transmission Date: 20150326
  Serious: Yes (Hospitalization, Other)
  Sender: FDA-Public Use
  Company Number: US-BAYER-2014-060593

PATIENT
  Age: 66 Year
  Sex: Male

DRUGS (1)
  1. STIVARGA [Suspect]
     Active Substance: REGORAFENIB
     Indication: RECTAL CANCER
     Dosage: 160 MG DAILY
     Route: 048
     Dates: start: 20140417, end: 20140423

REACTIONS (11)
  - Faeces discoloured [None]
  - Anaemia [None]
  - Dysphonia [None]
  - Asthenia [None]
  - Diarrhoea [None]
  - Decreased appetite [None]
  - Pain [None]
  - Rectal haemorrhage [None]
  - Transfusion [None]
  - Weight decreased [None]
  - Nausea [None]

NARRATIVE: CASE EVENT DATE: 20140417
